FAERS Safety Report 5338114-4 (Version None)
Quarter: 2007Q2

REPORT INFORMATION
  Report Type: 
  Country: None (occurrence: None)
  Receive Date: 20070530
  Receipt Date: 20070517
  Transmission Date: 20071010
  Serious: Yes (Other)
  Sender: FDA-Public Use
  Company Number: PHEH2007US05316

PATIENT
  Age: 59 Year
  Sex: Female

DRUGS (2)
  1. ZELNORM [Suspect]
     Indication: ABDOMINAL DISTENSION
     Dosage: 6 MG, BID
     Route: 048
     Dates: start: 20040101, end: 20070410
  2. VYTORIN [Suspect]
     Dates: end: 20060301

REACTIONS (10)
  - CATHETERISATION CARDIAC [None]
  - CHEST PAIN [None]
  - DYSPNOEA [None]
  - HEART RATE INCREASED [None]
  - HYPERHIDROSIS [None]
  - HYPOKINESIA [None]
  - MUSCULAR WEAKNESS [None]
  - PAIN [None]
  - PAIN IN EXTREMITY [None]
  - ROAD TRAFFIC ACCIDENT [None]
